FAERS Safety Report 6073925-1 (Version None)
Quarter: 2009Q1

REPORT INFORMATION
  Report Type: 
  Country: None (occurrence: None)
  Receive Date: 20090211
  Receipt Date: 20090203
  Transmission Date: 20090719
  Serious: Yes (Disabling, Other)
  Sender: FDA-Public Use
  Company Number: FR-AMGEN-UK327377

PATIENT
  Sex: Male
  Weight: 51 kg

DRUGS (6)
  1. NEULASTA [Suspect]
     Indication: CHEMOTHERAPY
     Route: 065
     Dates: start: 20081015
  2. TAXOTERE [Concomitant]
     Route: 065
     Dates: start: 20081015, end: 20081015
  3. CISPLATIN [Concomitant]
     Route: 065
     Dates: start: 20081015, end: 20081015
  4. SOLUPRED [Concomitant]
     Route: 065
     Dates: start: 20081015, end: 20081015
  5. ACETYLSALICYLIC ACID SRT [Concomitant]
     Route: 065
     Dates: start: 20060501
  6. PLAVIX [Concomitant]
     Route: 065
     Dates: start: 20060501

REACTIONS (2)
  - MUSCULOSKELETAL PAIN [None]
  - PAIN [None]
